FAERS Safety Report 6738126-X (Version None)
Quarter: 2010Q2

REPORT INFORMATION
  Report Type: 
  Country: None (occurrence: None)
  Receive Date: 20100524
  Receipt Date: 20100520
  Transmission Date: 20101027
  Serious: Yes (Death)
  Sender: FDA-Public Use
  Company Number: US-B.I. PHARMACEUTICALS,INC./RIDGEFIELD-2010-BP-03621BP

PATIENT
  Sex: Male

DRUGS (13)
  1. MIRAPEX [Suspect]
     Indication: RESTLESS LEGS SYNDROME
     Dates: start: 20080313
  2. COZAAR [Concomitant]
     Indication: HYPERTENSION
     Dosage: 100 MG
     Route: 048
  3. TOPROL-XL [Concomitant]
     Indication: HYPERTENSION
     Dosage: 50 MG
     Route: 048
  4. SYMLIN [Concomitant]
     Indication: DIABETES MELLITUS
  5. LIPITOR [Concomitant]
     Indication: HYPERCHOLESTEROLAEMIA
     Dosage: 40 MG
     Route: 048
  6. LANTUS [Concomitant]
     Indication: DIABETES MELLITUS
  7. NEURONTIN [Concomitant]
  8. ACTOS [Concomitant]
     Indication: DIABETES MELLITUS
     Dosage: 30 MG
     Route: 048
  9. PEPCID [Concomitant]
     Dosage: 40 MG
     Route: 048
  10. HUMALOG [Concomitant]
     Indication: DIABETES MELLITUS
     Dosage: 40 U
  11. FERRIX [Concomitant]
     Dosage: 150 MG
  12. CALCIUM CARBONATE [Concomitant]
     Dosage: 3000 MG
  13. ASPIRIN [Concomitant]
     Dosage: 325 MG

REACTIONS (1)
  - DEATH [None]
